FAERS Safety Report 11178947 (Version 2)
Quarter: 2015Q2

REPORT INFORMATION
  Report Type: Other
  Country: IT (occurrence: IT)
  Receive Date: 20150610
  Receipt Date: 20150622
  Transmission Date: 20150821
  Serious: Yes (Hospitalization, Other)
  Sender: FDA-Public Use
  Company Number: IT-MYLANLABS-2015M1018039

PATIENT

DRUGS (3)
  1. PIPERACILLINA E TAZOBACTAM MYLAN GENERICS [Suspect]
     Active Substance: PIPERACILLIN SODIUM\TAZOBACTAM SODIUM
     Indication: LUNG INFECTION
     Dosage: 13.5 G, QD
     Route: 042
     Dates: start: 20150328, end: 20150414
  2. TAVOR [Concomitant]
     Active Substance: LORAZEPAM
     Indication: ANXIETY
     Dosage: 2.5 MG
     Route: 048
     Dates: start: 20150331, end: 20150528
  3. METADONE CLORIDRATO AFOM [Concomitant]
     Active Substance: METHADONE HYDROCHLORIDE
     Indication: DRUG DEPENDENCE
     Dosage: 160 ML
     Route: 048
     Dates: start: 20150407, end: 20150528

REACTIONS (3)
  - Hyperpyrexia [Recovering/Resolving]
  - Blood lactate dehydrogenase increased [Unknown]
  - Thrombocytopenia [Recovering/Resolving]

NARRATIVE: CASE EVENT DATE: 20150414
